FAERS Safety Report 21928518 (Version 1)
Quarter: 2023Q1

REPORT INFORMATION
  Report Type: Spontaneous
  Country: US (occurrence: US)
  Receive Date: 20230130
  Receipt Date: 20230130
  Transmission Date: 20230417
  Serious: Yes (Other)
  Sender: FDA-Public Use
  Company Number: US-SUN PHARMACEUTICAL INDUSTRIES LTD-2022R1-325260

PATIENT
  Sex: Female

DRUGS (1)
  1. METOPROLOL [Suspect]
     Active Substance: METOPROLOL
     Indication: Blood pressure measurement
     Dosage: 50 MILLIGRAM, BID
     Route: 065

REACTIONS (3)
  - Drug ineffective [Unknown]
  - Palpitations [Unknown]
  - Headache [Unknown]
